FAERS Safety Report 15725806 (Version 1)
Quarter: 2018Q4

REPORT INFORMATION
  Report Type: Spontaneous
  Country: US (occurrence: US)
  Receive Date: 20181216
  Receipt Date: 20181216
  Transmission Date: 20190205
  Serious: No
  Sender: FDA-Public Use
  Company Number: US-JNJFOC-20181135961

PATIENT
  Sex: Female
  Weight: 69.85 kg

DRUGS (1)
  1. TYLENOL EXTRA STRENGTH [Suspect]
     Active Substance: ACETAMINOPHEN
     Indication: FIBROMYALGIA
     Route: 048

REACTIONS (3)
  - Product administration error [Unknown]
  - Dizziness [Recovered/Resolved]
  - Pain [Recovered/Resolved]
